FAERS Safety Report 7725182-5 (Version None)
Quarter: 2011Q3

REPORT INFORMATION
  Report Type: 
  Country: None (occurrence: None)
  Receive Date: 20110901
  Receipt Date: 20110823
  Transmission Date: 20111222
  Serious: Yes (Other)
  Sender: FDA-Public Use
  Company Number: US-US-EMD SERONO, INC.-7079311

PATIENT
  Sex: Female

DRUGS (1)
  1. REBIF [Suspect]
     Indication: MULTIPLE SCLEROSIS
     Route: 058
     Dates: start: 20070222

REACTIONS (5)
  - FALL [None]
  - WOUND [None]
  - MUSCLE SPASTICITY [None]
  - DIVERTICULITIS [None]
  - MULTIPLE SCLEROSIS RELAPSE [None]
